FAERS Safety Report 13144536 (Version 1)
Quarter: 2017Q1

REPORT INFORMATION
  Report Type: Spontaneous
  Country: US (occurrence: US)
  Receive Date: 20170124
  Receipt Date: 20170124
  Transmission Date: 20170428
  Serious: No
  Sender: FDA-Public Use
  Company Number: US-TEVA-712892USA

PATIENT
  Age: 18 Year
  Sex: Male

DRUGS (2)
  1. DEXTROAMPHETAMINE SULFATE. [Suspect]
     Active Substance: DEXTROAMPHETAMINE SULFATE
     Indication: ATTENTION DEFICIT/HYPERACTIVITY DISORDER
     Route: 065
     Dates: start: 2016
  2. XANAX [Suspect]
     Active Substance: ALPRAZOLAM
     Route: 065
     Dates: end: 2016

REACTIONS (5)
  - Restlessness [Unknown]
  - Insomnia [Unknown]
  - Drug ineffective [Unknown]
  - Disturbance in attention [Unknown]
  - Drug withdrawal syndrome [Unknown]

NARRATIVE: CASE EVENT DATE: 2016
